FAERS Safety Report 10470975 (Version 1)
Quarter: 2014Q3

REPORT INFORMATION
  Report Type: Spontaneous
  Country: US (occurrence: None)
  Receive Date: 20140917
  Receipt Date: 20140917
  Transmission Date: 20150326
  Serious: No
  Sender: FDA-Public Use
  Company Number: 2014CT000103

PATIENT
  Age: 47 Year
  Sex: Male
  Weight: 99.79 kg

DRUGS (10)
  1. ALFUZOSIN [Concomitant]
     Active Substance: ALFUZOSIN
  2. ETIDRONATE [Concomitant]
  3. KORLYM [Suspect]
     Active Substance: MIFEPRISTONE
     Indication: CUSHING^S SYNDROME
     Route: 048
     Dates: start: 20140723
  4. PROBENECID. [Concomitant]
     Active Substance: PROBENECID
  5. VITAMIN B12 [Concomitant]
     Active Substance: CYANOCOBALAMIN
  6. ROPINIROLE. [Concomitant]
     Active Substance: ROPINIROLE
  7. VEMPLAR [Concomitant]
  8. FINASTERIDE. [Concomitant]
     Active Substance: FINASTERIDE
  9. VASOPRESSIN [Concomitant]
     Active Substance: VASOPRESSIN
  10. UNIVERA EXTRA [Concomitant]

REACTIONS (4)
  - Renal pain [None]
  - Faeces discoloured [None]
  - Nausea [None]
  - Chromaturia [None]

NARRATIVE: CASE EVENT DATE: 201407
